FAERS Safety Report 12919289 (Version 14)
Quarter: 2022Q2

REPORT INFORMATION
  Report Type: Spontaneous
  Country: US (occurrence: US)
  Receive Date: 20161108
  Receipt Date: 20220401
  Transmission Date: 20220721
  Serious: Yes (Hospitalization, Other)
  Sender: FDA-Public Use
  Company Number: US-PFIZER INC-2016202529

PATIENT
  Age: 50 Year
  Sex: Male
  Weight: 98.866 kg

DRUGS (7)
  1. VFEND [Suspect]
     Active Substance: VORICONAZOLE
     Indication: Coccidioidomycosis
     Dosage: 100 MG, TWICE A DAY (IN THE MORNING AND AT NIGHT)
     Route: 048
     Dates: start: 2000
  2. VFEND [Suspect]
     Active Substance: VORICONAZOLE
     Indication: Rift Valley fever
     Dosage: 200 MG, 1 TABLET TWICE A DAY (BID)
     Route: 048
  3. VFEND [Suspect]
     Active Substance: VORICONAZOLE
     Dosage: 400 MG, DAILY [2 PO (PER ORAL) DAILY]
     Route: 048
  4. VFEND [Suspect]
     Active Substance: VORICONAZOLE
     Dosage: 200 MG, 2X/DAY
     Route: 048
     Dates: start: 201901
  5. VFEND [Suspect]
     Active Substance: VORICONAZOLE
     Dosage: (TAKE 1 PILL A DAY)
  6. GABAPENTIN [Concomitant]
     Active Substance: GABAPENTIN
     Dosage: UNK
  7. METFORMIN [Concomitant]
     Active Substance: METFORMIN HYDROCHLORIDE
     Dosage: UNK

REACTIONS (6)
  - Limb mass [Recovered/Resolved]
  - Neoplasm [Recovered/Resolved]
  - Myocardial infarction [Unknown]
  - Tracheal mass [Recovered/Resolved]
  - Off label use [Unknown]
  - Off label use [Unknown]

NARRATIVE: CASE EVENT DATE: 20000101
